FAERS Safety Report 4374396-3 (Version None)
Quarter: 2004Q2

REPORT INFORMATION
  Report Type: 
  Country: None (occurrence: None)
  Receive Date: 20040608
  Receipt Date: 20040608
  Transmission Date: 20050107
  Serious: Yes (Death)
  Sender: FDA-Public Use
  Company Number: None

PATIENT

DRUGS (1)
  1. BACLOFEN [Suspect]

REACTIONS (2)
  - CARDIAC ARREST [None]
  - INFUSION RELATED REACTION [None]
